FAERS Safety Report 8418577-8 (Version None)
Quarter: 2012Q2

REPORT INFORMATION
  Report Type: 
  Country: None (occurrence: None)
  Receive Date: 20120607
  Receipt Date: 20120604
  Transmission Date: 20120825
  Serious: No
  Sender: FDA-Public Use
  Company Number: US-PFIZER INC-2012134196

PATIENT
  Sex: Female
  Weight: 79 kg

DRUGS (9)
  1. CADUET [Suspect]
     Indication: CARDIAC DISORDER
     Dosage: 10/10 MG, 1X/DAY
     Route: 048
     Dates: end: 20120401
  2. CARVEDILOL [Concomitant]
     Dosage: 12.5 MG, UNK
  3. CADUET [Suspect]
     Indication: BLOOD PRESSURE
  4. PERINDOPRIL [Concomitant]
     Dosage: UNK
  5. FUROSEMIDE [Concomitant]
     Dosage: UNK
  6. ASPIRIN [Concomitant]
     Dosage: UNK
  7. AMLODIPINE BESYLATE AND ATORVASTATIN CALCIUM [Suspect]
     Indication: CARDIAC DISORDER
     Dosage: UNK, 2X/DAY
     Route: 048
     Dates: start: 20120401
  8. AMLODIPINE BESYLATE AND ATORVASTATIN CALCIUM [Suspect]
     Indication: BLOOD PRESSURE
  9. LIPITOR [Concomitant]
     Indication: HYPERTENSION
     Dosage: UNK

REACTIONS (5)
  - HEADACHE [None]
  - NECK PAIN [None]
  - OCULAR HYPERAEMIA [None]
  - LACRIMATION INCREASED [None]
  - ABNORMAL SENSATION IN EYE [None]
